FAERS Safety Report 15300111 (Version 1)
Quarter: 2018Q3

REPORT INFORMATION
  Report Type: Spontaneous
  Country: US (occurrence: US)
  Receive Date: 20180821
  Receipt Date: 20180821
  Transmission Date: 20181010
  Serious: No
  Sender: FDA-Public Use
  Company Number: US-PFIZER INC-2018334322

PATIENT
  Age: 72 Year
  Sex: Female

DRUGS (1)
  1. GENOTROPIN [Suspect]
     Active Substance: SOMATROPIN
     Dosage: 1 MG, DAILY (1MG MINIQUICK DAILY)
     Dates: start: 2004

REACTIONS (8)
  - Blood cholesterol increased [Unknown]
  - Low density lipoprotein abnormal [Unknown]
  - Blood urea decreased [Unknown]
  - Carbon dioxide increased [Unknown]
  - High density lipoprotein abnormal [Unknown]
  - Thyroglobulin increased [Unknown]
  - Blood thyroid stimulating hormone decreased [Unknown]
  - Thyroxine increased [Unknown]

NARRATIVE: CASE EVENT DATE: 20180702
